FAERS Safety Report 20518072 (Version 1)
Quarter: 2022Q1

REPORT INFORMATION
  Report Type: Other
  Country: JP (occurrence: JP)
  Receive Date: 20220225
  Receipt Date: 20220225
  Transmission Date: 20220423
  Serious: Yes (Other)
  Sender: FDA-Public Use
  Company Number: JP-CHUGAI-2021004610AA

PATIENT
  Age: 73 Year
  Sex: Male
  Weight: 49.2 kg

DRUGS (6)
  1. ATEZOLIZUMAB [Suspect]
     Active Substance: ATEZOLIZUMAB
     Indication: Lung adenocarcinoma
     Dosage: ON 01/SEP/2021, HE RECEIVED MOST RECENT DOSE OF ATEZOLIZUMAB.
     Route: 041
     Dates: start: 20210513
  2. CARBOPLATIN [Concomitant]
     Active Substance: CARBOPLATIN
     Indication: Lung adenocarcinoma
     Route: 041
     Dates: start: 20210513
  3. CARBOPLATIN [Concomitant]
     Active Substance: CARBOPLATIN
     Route: 041
     Dates: start: 20210721
  4. CARBOPLATIN [Concomitant]
     Active Substance: CARBOPLATIN
     Dosage: ON 01/SEP/2021, HE RECEIVED MOST RECENT DOSE OF CARBOPLATIN.
     Route: 041
  5. PACLITAXEL [Concomitant]
     Active Substance: PACLITAXEL
     Indication: Lung adenocarcinoma
     Route: 041
     Dates: start: 20210513, end: 20210513
  6. PACLITAXEL [Concomitant]
     Active Substance: PACLITAXEL
     Dosage: ON 01/SEP/2021, HE RECEIVED MOST RECENT DOSE OF PACLITAXEL ALBUMIN.
     Route: 041
     Dates: start: 20210721

REACTIONS (2)
  - Neutrophil count decreased [Unknown]
  - Liver disorder [Unknown]
